FAERS Safety Report 15327239 (Version 5)
Quarter: 2018Q4

REPORT INFORMATION
  Report Type: Spontaneous
  Country: JP (occurrence: JP)
  Receive Date: 20180828
  Receipt Date: 20181108
  Transmission Date: 20190204
  Serious: Yes (Other)
  Sender: FDA-Public Use
  Company Number: JP-JNJFOC-20180805043

PATIENT
  Age: 34 Year
  Sex: Male
  Weight: 86.8 kg

DRUGS (3)
  1. TREMFYA [Suspect]
     Active Substance: GUSELKUMAB
     Indication: PSORIATIC ARTHROPATHY
     Dosage: 100 MG
     Route: 058
     Dates: start: 20180618, end: 20180618
  2. TREMFYA [Suspect]
     Active Substance: GUSELKUMAB
     Indication: PSORIASIS
     Dosage: 100 MG
     Route: 058
     Dates: start: 20180618, end: 20180618
  3. REMICADE [Suspect]
     Active Substance: INFLIXIMAB
     Indication: PSORIATIC ARTHROPATHY
     Dates: start: 201609, end: 201803

REACTIONS (2)
  - Parathyroid hyperplasia [Recovering/Resolving]
  - Hyperparathyroidism [Recovering/Resolving]

NARRATIVE: CASE EVENT DATE: 20180629
